FAERS Safety Report 19690008 (Version 1)
Quarter: 2021Q3

REPORT INFORMATION
  Report Type: Spontaneous
  Country: US (occurrence: US)
  Receive Date: 20210811
  Receipt Date: 20210811
  Transmission Date: 20211014
  Serious: Yes (Other)
  Sender: FDA-Public Use
  Company Number: None

PATIENT
  Age: 43 Year
  Sex: Female
  Weight: 193.05 kg

DRUGS (12)
  1. EZETIMBE [Concomitant]
     Active Substance: EZETIMIBE
  2. GLUCOSE BLOOD TEST STRIPS [Concomitant]
  3. LISINOPRIL AND HYDROCHLOROTHIAZIDE [Concomitant]
     Active Substance: HYDROCHLOROTHIAZIDE\LISINOPRIL
  4. ALEVE [Concomitant]
     Active Substance: NAPROXEN SODIUM
  5. VITAMIN SUPPLEMENTS [Concomitant]
     Active Substance: VITAMINS
  6. LAXATIVES [Concomitant]
     Active Substance: UNSPECIFIED INGREDIENT
  7. STOOL SOFTENER (DOCUSATE) [Concomitant]
     Active Substance: DOCUSATE
  8. FEROSEMIDE [Concomitant]
  9. GLIMEPIRIDE 4MG TABLETS #30 [Suspect]
     Active Substance: GLIMEPIRIDE
     Indication: DIABETES MELLITUS
     Dosage: ?          QUANTITY:1 TABLET(S);?
     Route: 048
     Dates: start: 20210712, end: 20210808
  10. METFORMIN [Concomitant]
     Active Substance: METFORMIN HYDROCHLORIDE
  11. GLIMEPIRIDE 4MG TABLETS #30 [Suspect]
     Active Substance: GLIMEPIRIDE
     Indication: BLOOD GLUCOSE INCREASED
     Dosage: ?          QUANTITY:1 TABLET(S);?
     Route: 048
     Dates: start: 20210712, end: 20210808
  12. FINGERSTIX LANCETS [Concomitant]

REACTIONS (8)
  - Vomiting [None]
  - Abdominal discomfort [None]
  - Diarrhoea [None]
  - Hypersomnia [None]
  - Hyperhidrosis [None]
  - Rash [None]
  - Fatigue [None]
  - Asthenia [None]

NARRATIVE: CASE EVENT DATE: 20210807
